FAERS Safety Report 19011905 (Version 1)
Quarter: 2021Q1

REPORT INFORMATION
  Report Type: Spontaneous
  Country: US (occurrence: US)
  Receive Date: 20210316
  Receipt Date: 20210316
  Transmission Date: 20210420
  Serious: Yes (Life-Threatening, Other)
  Sender: FDA-Public Use
  Company Number: None

PATIENT
  Age: 37 Year
  Sex: Female
  Weight: 57.6 kg

DRUGS (5)
  1. WHEEL CHAIR [Concomitant]
  2. CAIN [Concomitant]
  3. OLANZAPINE. [Suspect]
     Active Substance: OLANZAPINE
     Indication: PRODUCT USED FOR UNKNOWN INDICATION
     Route: 048
     Dates: start: 20210313
  4. VITAMIN D3 [Concomitant]
     Active Substance: CHOLECALCIFEROL
  5. VITAMIN C [Concomitant]
     Active Substance: ASCORBIC ACID

REACTIONS (12)
  - Product prescribing error [None]
  - Pyrexia [None]
  - Photophobia [None]
  - Confusional state [None]
  - Vomiting [None]
  - Foaming at mouth [None]
  - Burning sensation [None]
  - Gastrointestinal disorder [None]
  - Eye irritation [None]
  - Diplopia [None]
  - Nausea [None]
  - Dysphemia [None]

NARRATIVE: CASE EVENT DATE: 20210313
